FAERS Safety Report 7742056-4 (Version None)
Quarter: 2011Q3

REPORT INFORMATION
  Report Type: 
  Country: None (occurrence: None)
  Receive Date: 20110912
  Receipt Date: 20110905
  Transmission Date: 20111222
  Serious: Yes (Hospitalization)
  Sender: FDA-Public Use
  Company Number: PHHY2011EC23855

PATIENT
  Sex: Female

DRUGS (4)
  1. DIGESTOPAN [Concomitant]
  2. ZOLEDRONOC ACID [Suspect]
     Indication: OSTEOPOROSIS
     Dosage: 5 MG,
     Route: 042
     Dates: start: 20101105
  3. LEVOTHYROXINE SODIUM [Concomitant]
  4. ANALGAN [Concomitant]

REACTIONS (10)
  - DECREASED APPETITE [None]
  - NAUSEA [None]
  - LOSS OF CONSCIOUSNESS [None]
  - DYSSTASIA [None]
  - CYSTITIS [None]
  - DIZZINESS [None]
  - HEADACHE [None]
  - ASTHENIA [None]
  - PARKINSON'S DISEASE [None]
  - VOMITING [None]
